FAERS Safety Report 8762588 (Version 2)
Quarter: 2012Q4

REPORT INFORMATION
  Report Type: 
  Country: HU (occurrence: HU)
  Receive Date: 20120830
  Receipt Date: 20121121
  Transmission Date: 20130627
  Serious: Yes (Life-Threatening, Hospitalization, Other)
  Sender: FDA-Public Use
  Company Number: HU-BAXTER-2012BAX009821

PATIENT
  Age: 1 Year
  Sex: Male
  Weight: 12 kg

DRUGS (1)
  1. ADVATE 250 IU POWDER AND SOLVENT FOR SOLUTION FOR INJECTION [Suspect]
     Indication: BLEEDING PROPHYLAXIS
     Route: 042
     Dates: start: 20120404, end: 20120619

REACTIONS (3)
  - Factor VIII inhibition [Not Recovered/Not Resolved]
  - Device related sepsis [Unknown]
  - Local swelling [Unknown]
